FAERS Safety Report 19093994 (Version 6)
Quarter: 2021Q4

REPORT INFORMATION
  Report Type: Report from Study
  Country: NL (occurrence: None)
  Receive Date: 20210405
  Receipt Date: 20211201
  Transmission Date: 20220303
  Serious: Yes (Hospitalization)
  Sender: FDA-Public Use
  Company Number: NL-ROCHE-2800784

PATIENT
  Age: 71 Year
  Sex: Female
  Weight: 61.1 kg

DRUGS (8)
  1. TIRAGOLUMAB [Suspect]
     Active Substance: TIRAGOLUMAB
     Indication: Non-small cell lung cancer
     Dosage: MOST RECENT DOSE OF TIRAGOLUMAB PRIOR TO SAE: 03/FEB/2021
     Route: 042
     Dates: start: 20201130
  2. ATEZOLIZUMAB [Suspect]
     Active Substance: ATEZOLIZUMAB
     Indication: Non-small cell lung cancer
     Dosage: MOST RECENT DOSE OF ATEZOLIZUMAB PRIOR TO SAE (1200 MG): 03/FEB/2021
     Route: 042
     Dates: start: 20201130
  3. CHOLECALCIFEROL [Concomitant]
     Active Substance: CHOLECALCIFEROL
     Indication: Vitamin D decreased
     Route: 048
     Dates: start: 20181005
  4. SOTALOL [Concomitant]
     Active Substance: SOTALOL
     Indication: Ventricular extrasystoles
     Route: 048
     Dates: start: 20150122
  5. NADROPARIN [Concomitant]
     Active Substance: NADROPARIN
     Indication: Pulmonary embolism
     Route: 058
     Dates: start: 20210111, end: 20210226
  6. NADROPARIN [Concomitant]
     Active Substance: NADROPARIN
     Indication: Atrial flutter
  7. CODEINE [Concomitant]
     Active Substance: CODEINE
     Indication: Cough
     Route: 048
     Dates: start: 20210125
  8. LEVOTHYROXINE [Concomitant]
     Active Substance: LEVOTHYROXINE
     Indication: Hypothyroidism
     Route: 048
     Dates: start: 20210309, end: 20210422

REACTIONS (1)
  - Nephrotic syndrome [Not Recovered/Not Resolved]

NARRATIVE: CASE EVENT DATE: 20210322
